FAERS Safety Report 9775009 (Version 3)
Quarter: 2014Q1

REPORT INFORMATION
  Report Type: Spontaneous
  Country: US (occurrence: US)
  Receive Date: 20131220
  Receipt Date: 20140310
  Transmission Date: 20141002
  Serious: Yes (Hospitalization, Other)
  Sender: FDA-Public Use
  Company Number: US-BAYER-2013-153140

PATIENT
  Age: 35 Year
  Sex: Female
  Weight: 87.08 kg

DRUGS (2)
  1. MIRENA [Suspect]
     Indication: CONTRACEPTION
     Dosage: 20 MCG/24HR, CONT
     Route: 015
     Dates: start: 20081202, end: 20111214
  2. METFORMIN [Concomitant]
     Indication: DIABETES MELLITUS
     Dosage: UNK
     Dates: start: 2010

REACTIONS (14)
  - Injury [None]
  - Device dislocation [None]
  - Procedural pain [None]
  - Abdominal pain [None]
  - Emotional distress [None]
  - Medical device discomfort [None]
  - Device dislocation [None]
  - Headache [None]
  - Genital haemorrhage [None]
  - Menstruation irregular [None]
  - Mood swings [None]
  - Back pain [None]
  - Device issue [None]
  - Menorrhagia [None]
